FAERS Safety Report 6870638-0 (Version None)
Quarter: 2010Q3

REPORT INFORMATION
  Report Type: 
  Country: None (occurrence: None)
  Receive Date: 20100721
  Receipt Date: 20100714
  Transmission Date: 20110219
  Serious: Yes (Death, Hospitalization)
  Sender: FDA-Public Use
  Company Number: 2010US002750

PATIENT
  Age: 62 Year
  Sex: Female
  Weight: 120 kg

DRUGS (2)
  1. AMBISOME [Suspect]
     Indication: CANDIDIASIS
  2. VANCOMYCIN [Concomitant]

REACTIONS (1)
  - SEPSIS [None]
